FAERS Safety Report 10589486 (Version 1)
Quarter: 2014Q4

REPORT INFORMATION
  Report Type: Spontaneous
  Country: US (occurrence: None)
  Receive Date: 20141114
  Receipt Date: 20141114
  Transmission Date: 20150529
  Serious: Yes (Hospitalization)
  Sender: FDA-Public Use
  Company Number: US-H14001-14-01522

PATIENT
  Age: 59 Year
  Sex: Male

DRUGS (1)
  1. INFUMORPH [Suspect]
     Active Substance: MORPHINE SULFATE
     Indication: POST LAMINECTOMY SYNDROME
     Dosage: (10 MG/ML) UNKNOWN

REACTIONS (5)
  - Tremor [None]
  - Injection site pain [None]
  - Pain [None]
  - White blood cell count increased [None]
  - Muscle spasms [None]

NARRATIVE: CASE EVENT DATE: 201410
